FAERS Safety Report 20451934 (Version 1)
Quarter: 2022Q1

REPORT INFORMATION
  Report Type: Report from Study
  Country: LB (occurrence: LB)
  Receive Date: 20220209
  Receipt Date: 20220209
  Transmission Date: 20220423
  Serious: Yes (Hospitalization)
  Sender: FDA-Public Use
  Company Number: LB-JNJFOC-20220209125

PATIENT
  Sex: Male

DRUGS (1)
  1. IMBRUVICA [Suspect]
     Active Substance: IBRUTINIB
     Indication: Mantle cell lymphoma
     Route: 048

REACTIONS (6)
  - Neoplasm malignant [Unknown]
  - Aphasia [Unknown]
  - Gait inability [Unknown]
  - Confusional state [Unknown]
  - Pyrexia [Unknown]
  - Ulcer [Not Recovered/Not Resolved]
